FAERS Safety Report 10242879 (Version 1)
Quarter: 2014Q2

REPORT INFORMATION
  Report Type: Spontaneous
  Country: TR (occurrence: TR)
  Receive Date: 20140618
  Receipt Date: 20140618
  Transmission Date: 20141212
  Serious: Yes (Other)
  Sender: FDA-Public Use
  Company Number: TR-009507513-1406TUR005683

PATIENT
  Age: 32 Year
  Sex: Male

DRUGS (1)
  1. PROPECIA [Suspect]
     Indication: ANDROGENETIC ALOPECIA
     Dosage: 1 MG, QD
     Route: 048
     Dates: start: 2008

REACTIONS (5)
  - Muscle atrophy [Recovering/Resolving]
  - Abdominal pain lower [Recovering/Resolving]
  - Anxiety [Recovering/Resolving]
  - Testicular pain [Recovering/Resolving]
  - Erectile dysfunction [Recovering/Resolving]
